FAERS Safety Report 23724835 (Version 1)
Quarter: 2024Q2

REPORT INFORMATION
  Report Type: Spontaneous
  Country: ES (occurrence: ES)
  Receive Date: 20240410
  Receipt Date: 20240410
  Transmission Date: 20240716
  Serious: Yes (Hospitalization, Other)
  Sender: FDA-Public Use
  Company Number: ES-ALKEM LABORATORIES LIMITED-ES-ALKEM-2024-07015

PATIENT
  Age: 39 Year
  Sex: Female

DRUGS (3)
  1. MESALAMINE [Suspect]
     Active Substance: MESALAMINE
     Indication: Colitis ulcerative
     Dosage: UNK
     Route: 054
  2. TOFACITINIB [Suspect]
     Active Substance: TOFACITINIB
     Indication: Colitis ulcerative
     Dosage: 10 MILLIGRAM, BID
     Route: 065
  3. TOFACITINIB [Suspect]
     Active Substance: TOFACITINIB
     Dosage: 5 MILLIGRAM, BID (MAINTENANCE DOSE)
     Route: 065

REACTIONS (3)
  - Premature rupture of membranes [Unknown]
  - Premature delivery [Unknown]
  - Exposure during pregnancy [Unknown]
